FAERS Safety Report 8243516-2 (Version None)
Quarter: 2012Q1

REPORT INFORMATION
  Report Type: 
  Country: None (occurrence: None)
  Receive Date: 20120329
  Receipt Date: 20120322
  Transmission Date: 20120608
  Serious: Yes (Other)
  Sender: FDA-Public Use
  Company Number: PHHY2010BR23464

PATIENT
  Sex: Female
  Weight: 80 kg

DRUGS (5)
  1. COSOPT [Concomitant]
     Indication: ERYTHROPSIA
     Dosage: 1 DF (ONE DROP IN EACH EYE), BID
  2. CEBRALAT [Concomitant]
     Indication: MOVEMENT DISORDER
     Dosage: 100 MG, DAILY
     Route: 048
  3. DIOVAN [Suspect]
     Indication: HYPERTENSION
     Dosage: 80 MG, DAILY
  4. LEXAPRO [Concomitant]
     Indication: DEPRESSION
     Dosage: 7.5 MG, DAILY
     Route: 048
  5. ALPRAZOLAM [Concomitant]
     Indication: SLEEP DISORDER
     Dosage: 0.25 MG, QD (AT NIGHT)
     Route: 048

REACTIONS (1)
  - BLOOD PRESSURE INCREASED [None]
